FAERS Safety Report 8843244 (Version 1)
Quarter: 2012Q4

REPORT INFORMATION
  Report Type: 
  Country: AU (occurrence: AU)
  Receive Date: 20121016
  Receipt Date: 20121016
  Transmission Date: 20130627
  Serious: Yes (Other)
  Sender: FDA-Public Use
  Company Number: PHHY2012AU089964

PATIENT
  Age: 73 Year
  Sex: Male

DRUGS (10)
  1. WARFARIN [Suspect]
     Indication: HEART VALVE REPLACEMENT
  2. BCG VACCINE [Suspect]
     Indication: BLADDER CANCER
  3. MIRTAZAPINE [Concomitant]
  4. THYROXINE [Concomitant]
  5. RISEDRONATE SODIUM [Concomitant]
  6. OXYCODONE [Concomitant]
  7. PARACETAMOL [Concomitant]
  8. CODEINE [Concomitant]
  9. CALCIUM [Concomitant]
  10. VITAMIN D [Concomitant]

REACTIONS (4)
  - Arthritis reactive [Recovering/Resolving]
  - Pain [Recovering/Resolving]
  - Arthralgia [Recovering/Resolving]
  - Cerebral haemorrhage [Unknown]
